FAERS Safety Report 6917511-7 (Version None)
Quarter: 2010Q3

REPORT INFORMATION
  Report Type: 
  Country: None (occurrence: None)
  Receive Date: 20100810
  Receipt Date: 20100805
  Transmission Date: 20110219
  Serious: Yes (Other)
  Sender: FDA-Public Use
  Company Number: 980909-008013329

PATIENT
  Sex: Female
  Weight: 46 kg

DRUGS (2)
  1. GYNO-PEVARYL LP [Suspect]
     Indication: MYCOSIS FUNGOIDES
     Route: 067
     Dates: start: 19970809, end: 19970809
  2. MICONAZOLE [Suspect]
     Indication: PRODUCT USED FOR UNKNOWN INDICATION
     Route: 048
     Dates: start: 19970809, end: 19970815

REACTIONS (1)
  - ABORTION [None]
